FAERS Safety Report 16662751 (Version 1)
Quarter: 2019Q3

REPORT INFORMATION
  Report Type: Report from Study
  Country: US (occurrence: US)
  Receive Date: 20190802
  Receipt Date: 20190802
  Transmission Date: 20191004
  Serious: No
  Sender: FDA-Public Use
  Company Number: US-EXELIXIS-CABO-19019275

PATIENT
  Age: 64 Year
  Sex: Male

DRUGS (18)
  1. PRILOSEC [Concomitant]
     Active Substance: OMEPRAZOLE MAGNESIUM
  2. FISH OIL [Concomitant]
     Active Substance: FISH OIL
  3. TYLENOL [Concomitant]
     Active Substance: ACETAMINOPHEN
  4. ASPIRIN. [Concomitant]
     Active Substance: ASPIRIN
  5. FLUTICASONE. [Concomitant]
     Active Substance: FLUTICASONE
  6. ATENOLOL. [Concomitant]
     Active Substance: ATENOLOL
  7. CALCIUM [Concomitant]
     Active Substance: CALCIUM
  8. BASAGLAR [Concomitant]
     Active Substance: INSULIN GLARGINE
  9. LASIX [Concomitant]
     Active Substance: FUROSEMIDE
  10. FLOMAX [Concomitant]
     Active Substance: TAMSULOSIN HYDROCHLORIDE
  11. CETRIZINE [Concomitant]
     Active Substance: CETIRIZINE HYDROCHLORIDE
  12. NITROGLYCERIN. [Concomitant]
     Active Substance: NITROGLYCERIN
  13. CABOMETYX [Suspect]
     Active Substance: CABOZANTINIB S-MALATE
     Indication: RENAL CANCER
     Dosage: 60 MG, QD
     Route: 048
     Dates: start: 20190115, end: 20190301
  14. NIFEDIPINE. [Concomitant]
     Active Substance: NIFEDIPINE
  15. GLIPIZIDE. [Concomitant]
     Active Substance: GLIPIZIDE
  16. CLONIDINE. [Concomitant]
     Active Substance: CLONIDINE
  17. METFORMIN [Concomitant]
     Active Substance: METFORMIN HYDROCHLORIDE
  18. ATORVASTATIN [Concomitant]
     Active Substance: ATORVASTATIN

REACTIONS (3)
  - Contusion [Not Recovered/Not Resolved]
  - Oral pain [Recovering/Resolving]
  - Pain in extremity [Not Recovered/Not Resolved]

NARRATIVE: CASE EVENT DATE: 201902
